FAERS Safety Report 16012050 (Version 2)
Quarter: 2019Q2

REPORT INFORMATION
  Report Type: Spontaneous
  Country: DE (occurrence: DE)
  Receive Date: 20190227
  Receipt Date: 20190610
  Transmission Date: 20190711
  Serious: Yes (Death, Hospitalization, Other)
  Sender: FDA-Public Use
  Company Number: DE-BAYER-2019-040894

PATIENT
  Age: 82 Year
  Sex: Male

DRUGS (8)
  1. DIGITOXIN [Concomitant]
     Active Substance: DIGITOXIN
     Indication: TACHYCARDIA
     Dosage: 0.07 MG, QD; 1-0-0;
  2. RAMIPRIL. [Suspect]
     Active Substance: RAMIPRIL
     Indication: HYPERTENSION
     Dosage: 5 MG, QD
     Dates: start: 20190112
  3. XARELTO [Concomitant]
     Active Substance: RIVAROXABAN
     Indication: ATRIAL FIBRILLATION
     Dosage: 15 MG, QD, 0-0-1; INGREDIENT (RIVAROXABAN): 15MG;
     Route: 048
  4. NAPROXEN SODIUM ({= 220 MG) [Suspect]
     Active Substance: NAPROXEN SODIUM
     Indication: ARTHRITIS
     Dosage: 250 MG, UNK
     Dates: start: 20190128, end: 20190129
  5. AMLODIPINE [Concomitant]
     Active Substance: AMLODIPINE BESYLATE
     Dosage: 5 MG, QD; 1-0-0; INGREDIENT (AMLODIPINE): 5MG;
  6. RAMILICH COMP [Suspect]
     Active Substance: HYDROCHLOROTHIAZIDE\RAMIPRIL
     Dosage: 1 DF, QD; 1-0-0; INGREDIENT (HYDROCHLOROTHIAZIDE): 25MG; INGREDIENT (RAMIPRIL): 5MG;
  7. BISOPROLOL [Concomitant]
     Active Substance: BISOPROLOL
     Indication: TACHYCARDIA
     Dosage: 2.5 MG, BID; 1-0-1; INGREDIENT (BISOPROLOL): 2.5MG;
     Dates: start: 20190112
  8. TORASEMID [Concomitant]
     Active Substance: TORSEMIDE
     Dosage: 10 MG, TID; INGREDIENT (TORASEMIDE): 10MG;

REACTIONS (4)
  - Staphylococcal scalded skin syndrome [Fatal]
  - Staphylococcal sepsis [Fatal]
  - Toxic epidermal necrolysis [Fatal]
  - Erysipelas [Fatal]

NARRATIVE: CASE EVENT DATE: 20190130
